FAERS Safety Report 20579537 (Version 1)
Quarter: 2022Q1

REPORT INFORMATION
  Report Type: Spontaneous
  Country: None (occurrence: CA)
  Receive Date: 20220310
  Receipt Date: 20220310
  Transmission Date: 20220423
  Serious: Yes (Other)
  Sender: FDA-Public Use
  Company Number: CA-B.Braun Medical Inc.-2126658

PATIENT
  Age: 83 Year

DRUGS (16)
  1. SODIUM CHLORIDE [Suspect]
     Active Substance: SODIUM CHLORIDE
  2. IPILIMUMAB [Suspect]
     Active Substance: IPILIMUMAB
  3. NIVOLUMAB [Suspect]
     Active Substance: NIVOLUMAB
  4. ACETAMINOPHEN [Concomitant]
     Active Substance: ACETAMINOPHEN
  5. INDAPAMIDE [Concomitant]
     Active Substance: INDAPAMIDE
  6. VITAMIN B12 [Concomitant]
     Active Substance: CYANOCOBALAMIN
  7. COLACE [Concomitant]
     Active Substance: DOCUSATE SODIUM
  8. CORTISONE [Concomitant]
     Active Substance: CORTISONE
  9. DEXILANT [Concomitant]
     Active Substance: DEXLANSOPRAZOLE
  10. HYDROMORPHONE [Concomitant]
     Active Substance: HYDROMORPHONE
  11. INDAPAMIDE [Concomitant]
     Active Substance: INDAPAMIDE
  12. NIFEDIPINE [Concomitant]
     Active Substance: NIFEDIPINE
  13. PREDNISOLONE [Concomitant]
     Active Substance: PREDNISOLONE
  14. SENNOSIDES [Concomitant]
     Active Substance: SENNOSIDES
  15. TELMISARTAN [Concomitant]
     Active Substance: TELMISARTAN
  16. VITAMIN D NOS [Concomitant]
     Active Substance: VITAMIN D NOS

REACTIONS (13)
  - Arthralgia [Not Recovered/Not Resolved]
  - Asthenia [Not Recovered/Not Resolved]
  - Cough [Not Recovered/Not Resolved]
  - Decreased appetite [Not Recovered/Not Resolved]
  - Diarrhoea [Not Recovered/Not Resolved]
  - Dizziness [Not Recovered/Not Resolved]
  - Fatigue [Not Recovered/Not Resolved]
  - General physical health deterioration [Not Recovered/Not Resolved]
  - Intentional product use issue [Not Recovered/Not Resolved]
  - Poor venous access [Not Recovered/Not Resolved]
  - Synovial cyst [Not Recovered/Not Resolved]
  - Vein rupture [Not Recovered/Not Resolved]
  - Weight decreased [Not Recovered/Not Resolved]
